FAERS Safety Report 20760317 (Version 1)
Quarter: 2022Q2

REPORT INFORMATION
  Report Type: Spontaneous
  Country: US (occurrence: US)
  Receive Date: 20220428
  Receipt Date: 20220428
  Transmission Date: 20220721
  Serious: No
  Sender: FDA-Public Use
  Company Number: US-ENDO PHARMACEUTICALS INC-2022-001103

PATIENT
  Sex: Female
  Weight: 52.154 kg

DRUGS (8)
  1. QWO [Suspect]
     Active Substance: COLLAGENASE CLOSTRIDIUM HISTOLYTICUM-AAES
     Indication: Cellulite
     Dosage: 1.84 MG, UNKNOWN (TREATMENT ONE)
     Route: 065
     Dates: start: 20210623
  2. QWO [Suspect]
     Active Substance: COLLAGENASE CLOSTRIDIUM HISTOLYTICUM-AAES
     Dosage: 1.84 MG, UNKNOWN (TREATMENT TWO)
     Route: 065
     Dates: start: 20210714
  3. QWO [Suspect]
     Active Substance: COLLAGENASE CLOSTRIDIUM HISTOLYTICUM-AAES
     Dosage: 1.84 MG, UNKNOWN (TREATMENT THREE)
     Route: 065
     Dates: start: 20210804, end: 20210804
  4. LEVOTHYROXINE [Concomitant]
     Active Substance: LEVOTHYROXINE
     Indication: Hypothyroidism
     Dosage: 0.25 MG, OD
     Route: 048
  5. HYDROCHLOROTHIAZIDE [Concomitant]
     Active Substance: HYDROCHLOROTHIAZIDE
     Indication: Hypertension
     Dosage: 25 MG, OD
     Route: 048
  6. HYDROXYCHLOROQUINE DIPHOSPHATE [Concomitant]
     Active Substance: HYDROXYCHLOROQUINE DIPHOSPHATE
     Indication: Sjogren^s syndrome
     Dosage: 100 MG, OD
     Route: 048
  7. DOXYCYCLINE [Concomitant]
     Active Substance: DOXYCYCLINE
     Indication: Sjogren^s syndrome
     Dosage: 20 MG, UNK
     Route: 048
  8. ZYRTEC                             /00884302/ [Concomitant]
     Indication: Hypersensitivity
     Dosage: 20 MG, UNK
     Route: 048

REACTIONS (2)
  - Contusion [Recovering/Resolving]
  - Off label use [Unknown]

NARRATIVE: CASE EVENT DATE: 20210623
